FAERS Safety Report 8541971-1 (Version None)
Quarter: 2012Q3

REPORT INFORMATION
  Report Type: 
  Country: None (occurrence: None)
  Receive Date: 20120726
  Receipt Date: 20110928
  Transmission Date: 20120928
  Serious: No
  Sender: FDA-Public Use
  Company Number: US-ASTRAZENECA-2011SE58381

PATIENT
  Age: 17 Year
  Sex: Male

DRUGS (2)
  1. SEROQUEL [Suspect]
     Route: 048
     Dates: start: 20110907
  2. SEROQUEL [Suspect]
     Indication: AFFECTIVE DISORDER
     Route: 048

REACTIONS (10)
  - SPEECH DISORDER [None]
  - DISTURBANCE IN ATTENTION [None]
  - APNOEA [None]
  - CHROMATURIA [None]
  - HYPERSENSITIVITY [None]
  - TACHYPHRENIA [None]
  - HYPOAESTHESIA [None]
  - NASAL OEDEMA [None]
  - HALLUCINATION, VISUAL [None]
  - HYPERHIDROSIS [None]
